FAERS Safety Report 8367131-5 (Version None)
Quarter: 2012Q1

REPORT INFORMATION
  Report Type: 
  Country: None (occurrence: None)
  Receive Date: 20120323
  Receipt Date: 20110824
  Transmission Date: 20120608
  Serious: Yes (Other)
  Sender: FDA-Public Use
  Company Number: 163-21880-11073342

PATIENT
  Age: 66 Year
  Sex: Male

DRUGS (13)
  1. DICLOFENAC SODIUM [Concomitant]
  2. DEXAMETHASONE [Concomitant]
  3. ATACAND [Concomitant]
  4. BENADRY (DIPHENHYDRAMINE HYDROCHLORIDE) [Concomitant]
  5. COLCHINE (COLCHICINE) [Concomitant]
  6. COMPAZINE [Concomitant]
  7. XANAX [Concomitant]
  8. REVLIMID [Suspect]
     Indication: MULTIPLE MYELOMA
     Dosage: 25 MG, QD, 21/28, PO; 25 MG, 1 IN 1 D, PO; 25 MG, EVERY OTHER DAY, PO; 10 MG, DAILY X21 DAYS, PO
     Route: 048
     Dates: start: 20110201
  9. REVLIMID [Suspect]
     Indication: MULTIPLE MYELOMA
     Dosage: 25 MG, QD, 21/28, PO; 25 MG, 1 IN 1 D, PO; 25 MG, EVERY OTHER DAY, PO; 10 MG, DAILY X21 DAYS, PO
     Route: 048
     Dates: start: 20110801
  10. REVLIMID [Suspect]
     Indication: MULTIPLE MYELOMA
     Dosage: 25 MG, QD, 21/28, PO; 25 MG, 1 IN 1 D, PO; 25 MG, EVERY OTHER DAY, PO; 10 MG, DAILY X21 DAYS, PO
     Route: 048
     Dates: start: 20110101, end: 20110801
  11. REVLIMID [Suspect]
     Indication: MULTIPLE MYELOMA
     Dosage: 25 MG, QD, 21/28, PO; 25 MG, 1 IN 1 D, PO; 25 MG, EVERY OTHER DAY, PO; 10 MG, DAILY X21 DAYS, PO
     Route: 048
     Dates: start: 20110804
  12. DIAZIDE (GLICLAZINE) [Concomitant]
  13. WELLBUTRIN [Concomitant]

REACTIONS (1)
  - DEEP VEIN THROMBOSIS [None]
